FAERS Safety Report 7510815-9 (Version None)
Quarter: 2011Q2

REPORT INFORMATION
  Report Type: 
  Country: None (occurrence: None)
  Receive Date: 20110531
  Receipt Date: 20110525
  Transmission Date: 20111010
  Serious: Yes (Other)
  Sender: FDA-Public Use
  Company Number: IE-BRISTOL-MYERS SQUIBB COMPANY-15658008

PATIENT
  Age: 70 Year
  Sex: Female
  Weight: 60 kg

DRUGS (7)
  1. VITAMIN D [Concomitant]
     Indication: OSTEOPOROSIS
     Dates: start: 20101001
  2. HYDROXYCHLOROQUINE SULFATE [Concomitant]
     Indication: MUSCULOSKELETAL PAIN
     Dates: start: 20080101
  3. ASPIRIN [Concomitant]
  4. ABATACEPT [Suspect]
     Indication: RHEUMATOID ARTHRITIS
     Dosage: DISCONTINUED 2 MONTHS AGO.
     Route: 042
     Dates: start: 20091101, end: 20110204
  5. ASPIRIN [Concomitant]
     Indication: TRANSIENT ISCHAEMIC ATTACK
     Dates: start: 20060101
  6. DELTACORTRIL [Concomitant]
     Indication: RHEUMATOID ARTHRITIS
     Route: 048
     Dates: start: 20060301
  7. CALCIUM CARBONATE [Concomitant]
     Indication: OSTEOPOROSIS
     Dates: start: 20101001

REACTIONS (1)
  - LIVER FUNCTION TEST ABNORMAL [None]
